FAERS Safety Report 6166034-4 (Version None)
Quarter: 2009Q2

REPORT INFORMATION
  Report Type: 
  Country: None (occurrence: None)
  Receive Date: 20090424
  Receipt Date: 20090414
  Transmission Date: 20091009
  Serious: Yes (Death)
  Sender: FDA-Public Use
  Company Number: GB-RANBAXY-2009RR-23466

PATIENT

DRUGS (3)
  1. ALLOPURINOL [Suspect]
     Route: 065
  2. CEFTRIAXONE [Suspect]
  3. FUROSEMIDE [Suspect]
     Route: 065

REACTIONS (1)
  - RENAL FAILURE [None]
